FAERS Safety Report 4534064-1 (Version None)
Quarter: 2004Q4

REPORT INFORMATION
  Report Type: 
  Country: None (occurrence: None)
  Receive Date: 20041221
  Receipt Date: 20041221
  Transmission Date: 20050328
  Serious: Yes (Other)
  Sender: FDA-Public Use
  Company Number: None

PATIENT
  Age: 71 Year
  Sex: Male
  Weight: 95.5 kg

DRUGS (5)
  1. LISINOPRIL [Suspect]
  2. SIMVASTATIN [Concomitant]
  3. TERAZOSIN HCL [Concomitant]
  4. OMEPRAZOLE [Concomitant]
  5. ALLOPURINOL [Concomitant]

REACTIONS (1)
  - COUGH [None]
